FAERS Safety Report 6765649-X (Version None)
Quarter: 2010Q2

REPORT INFORMATION
  Report Type: 
  Country: None (occurrence: None)
  Receive Date: 20100611
  Receipt Date: 20100607
  Transmission Date: 20101027
  Serious: No
  Sender: FDA-Public Use
  Company Number: US-ROXANE LABORATORIES, INC.-2010-RO-00697RO

PATIENT
  Sex: Female

DRUGS (1)
  1. METHOTREXATE [Suspect]

REACTIONS (6)
  - DISCOMFORT [None]
  - IMPAIRED WORK ABILITY [None]
  - JOINT LOCK [None]
  - MOBILITY DECREASED [None]
  - PERFORMANCE STATUS DECREASED [None]
  - RHEUMATOID ARTHRITIS [None]
